FAERS Safety Report 4543074-X (Version None)
Quarter: 2004Q4

REPORT INFORMATION
  Report Type: 
  Country: None (occurrence: None)
  Receive Date: 20041229
  Receipt Date: 20041229
  Transmission Date: 20050328
  Serious: No
  Sender: FDA-Public Use
  Company Number: None

PATIENT
  Age: 89 Year
  Sex: Male
  Weight: 75 kg

DRUGS (8)
  1. CELECOXIB  100MG   PFIZER [Suspect]
     Indication: OSTEOARTHRITIS
     Dosage: 100MG   BID   ORAL
     Route: 048
     Dates: start: 20030601, end: 20041211
  2. ASPIRIN [Concomitant]
  3. FUROSEMIDE [Concomitant]
  4. LISINOPRIL [Concomitant]
  5. ATORVISTATIN [Concomitant]
  6. METOPROLOL [Concomitant]
  7. TAMSULOSIN [Concomitant]
  8. ACETAMINOPHEN [Concomitant]

REACTIONS (2)
  - MEDICATION ERROR [None]
  - TRANSIENT ISCHAEMIC ATTACK [None]
